FAERS Safety Report 5740554-6 (Version None)
Quarter: 2008Q2

REPORT INFORMATION
  Report Type: 
  Country: None (occurrence: None)
  Receive Date: 20080516
  Receipt Date: 20080505
  Transmission Date: 20081010
  Serious: Yes (Other)
  Sender: FDA-Public Use
  Company Number: US-JNJFOC-20080501370

PATIENT
  Sex: Female
  Weight: 72.58 kg

DRUGS (6)
  1. ULTRAM [Suspect]
     Indication: ARTHRITIS
     Dosage: UP TO 300 MG PER DAY AS NEEDED
     Route: 048
  2. TRAMADOL HCL [Suspect]
     Indication: ARTHRITIS
     Dosage: UP TO 300 MG PER DAY AS NEEDED
     Route: 048
  3. SYNTHROID [Concomitant]
     Route: 048
  4. ZANAFLEX [Concomitant]
     Indication: MUSCLE SPASMS
     Route: 048
  5. PRINIVIL [Concomitant]
     Route: 048
  6. PRINIVIL [Concomitant]
     Indication: BLOOD PRESSURE
     Route: 048

REACTIONS (4)
  - DRUG INEFFECTIVE [None]
  - FATIGUE [None]
  - HYPERTENSION [None]
  - PALPITATIONS [None]
